FAERS Safety Report 17258308 (Version 1)
Quarter: 2020Q1

REPORT INFORMATION
  Report Type: Spontaneous
  Country: KR (occurrence: KR)
  Receive Date: 20200110
  Receipt Date: 20200110
  Transmission Date: 20200409
  Serious: Yes (Death, Other)
  Sender: FDA-Public Use
  Company Number: KR-ASTRAZENECA-2020SE03822

PATIENT
  Age: 50 Year
  Sex: Female

DRUGS (1)
  1. OLAPARIB. [Suspect]
     Active Substance: OLAPARIB
     Route: 048
     Dates: start: 201411, end: 201507

REACTIONS (6)
  - Metastases to ovary [Unknown]
  - Malignant neoplasm progression [Unknown]
  - Abdominal pain [Unknown]
  - Decreased appetite [Unknown]
  - Dizziness [Unknown]
  - Death [Fatal]

NARRATIVE: CASE EVENT DATE: 201507
